FAERS Safety Report 12381022 (Version 2)
Quarter: 2017Q1

REPORT INFORMATION
  Report Type: Spontaneous
  Country: US (occurrence: US)
  Receive Date: 20160518
  Receipt Date: 20170316
  Transmission Date: 20170428
  Serious: Yes (Hospitalization)
  Sender: FDA-Public Use
  Company Number: US-SA-2016SA095731

PATIENT
  Age: 3 Year
  Sex: Female
  Weight: 18.4 kg

DRUGS (3)
  1. VITAMIN D3 [Concomitant]
     Active Substance: CHOLECALCIFEROL
     Indication: VITAMIN D DECREASED
     Dates: start: 20151124
  2. GLYCOPYRROLATE. [Concomitant]
     Active Substance: GLYCOPYRROLATE
     Dates: start: 20160211
  3. LUMIZYME [Suspect]
     Active Substance: ALGLUCOSIDASE ALFA
     Indication: GLYCOGEN STORAGE DISEASE TYPE II
     Route: 041
     Dates: start: 20120925

REACTIONS (5)
  - Dyspnoea [Recovered/Resolved]
  - Respiratory failure [Recovered/Resolved]
  - Parainfluenzae virus infection [Recovered/Resolved]
  - Respiratory distress [Recovered/Resolved]
  - Rhinovirus infection [Recovered/Resolved]

NARRATIVE: CASE EVENT DATE: 20160503
